FAERS Safety Report 24663132 (Version 1)
Quarter: 2024Q4

REPORT INFORMATION
  Report Type: Spontaneous
  Country: US (occurrence: US)
  Receive Date: 20241126
  Receipt Date: 20241126
  Transmission Date: 20250114
  Serious: No
  Sender: ABBVIE
  Company Number: US-ABBVIE-6018964

PATIENT

DRUGS (1)
  1. SKYRIZI [Suspect]
     Active Substance: RISANKIZUMAB-RZAA
     Indication: Product used for unknown indication
     Dosage: RECEIVED 2 INJECTIONS OF SKYRIZI
     Route: 058

REACTIONS (3)
  - Urticaria [Unknown]
  - Joint swelling [Unknown]
  - Swollen tongue [Unknown]
